FAERS Safety Report 20491661 (Version 1)
Quarter: 2022Q1

REPORT INFORMATION
  Report Type: Spontaneous
  Country: US (occurrence: US)
  Receive Date: 20220218
  Receipt Date: 20220218
  Transmission Date: 20220423
  Serious: Yes (Other)
  Sender: FDA-Public Use
  Company Number: US-AURINIA PHARMACEUTICALS INC.-AUR-001005

PATIENT
  Age: 34 Year
  Sex: Female

DRUGS (1)
  1. LUPKYNIS [Suspect]
     Active Substance: VOCLOSPORIN
     Indication: Lupus nephritis
     Dosage: 23.7 MILLIGRAM, BID
     Route: 048
     Dates: start: 20210715

REACTIONS (10)
  - Haemoglobin decreased [Unknown]
  - Asthenia [Unknown]
  - Blood glucose abnormal [Unknown]
  - Vision blurred [Unknown]
  - Muscle spasms [Unknown]
  - Arthralgia [Unknown]
  - Peripheral swelling [Unknown]
  - Hypertension [Unknown]
  - Fatigue [Unknown]
  - Decreased appetite [Unknown]

NARRATIVE: CASE EVENT DATE: 20220101
